FAERS Safety Report 25145510 (Version 1)
Quarter: 2025Q2

REPORT INFORMATION
  Report Type: Spontaneous
  Country: US (occurrence: US)
  Receive Date: 20250401
  Receipt Date: 20250401
  Transmission Date: 20250717
  Serious: Yes (Death)
  Sender: PFIZER
  Company Number: US-PFIZER INC-202500066193

PATIENT
  Age: 44 Year
  Sex: Female

DRUGS (4)
  1. KETAMINE HYDROCHLORIDE [Suspect]
     Active Substance: KETAMINE HYDROCHLORIDE
  2. MIDOMAFETAMINE [Suspect]
     Active Substance: MIDOMAFETAMINE
  3. COCAINE [Suspect]
     Active Substance: COCAINE
  4. TENAMFETAMINE [Suspect]
     Active Substance: TENAMFETAMINE

REACTIONS (3)
  - Drug abuse [Fatal]
  - Completed suicide [Fatal]
  - Injury [Fatal]
